FAERS Safety Report 5875303-4 (Version None)
Quarter: 2008Q3

REPORT INFORMATION
  Report Type: 
  Country: None (occurrence: None)
  Receive Date: 20080904
  Receipt Date: 20080826
  Transmission Date: 20090109
  Serious: Yes (Death)
  Sender: FDA-Public Use
  Company Number: 2008BI020483

PATIENT
  Age: 54 Year
  Sex: Female

DRUGS (2)
  1. TYSABRI [Suspect]
     Indication: MULTIPLE SCLEROSIS
     Dosage: 300 MG; QM; IV
     Route: 042
     Dates: start: 20071213, end: 20080612
  2. BETA BLOCKER [Concomitant]

REACTIONS (4)
  - COMPLETED SUICIDE [None]
  - HYPOXIA [None]
  - LACERATION [None]
  - OVERDOSE [None]
